FAERS Safety Report 9408727 (Version 3)
Quarter: 2013Q4

REPORT INFORMATION
  Report Type: Report from Study
  Country: JP (occurrence: JP)
  Receive Date: 20130718
  Receipt Date: 20131211
  Transmission Date: 20140711
  Serious: Yes (Life-Threatening, Hospitalization, Other)
  Sender: FDA-Public Use
  Company Number: JP-GILEAD-2013-0079512

PATIENT
  Age: 77 Year
  Sex: Female
  Weight: 43 kg

DRUGS (12)
  1. AMBRISENTAN [Suspect]
     Indication: PULMONARY HYPERTENSION
     Dosage: 2.5 MG, QD
     Route: 048
     Dates: start: 20120213, end: 201202
  2. AMBRISENTAN [Suspect]
     Dosage: 2.5 MG, QD
     Route: 048
     Dates: start: 201202, end: 20120520
  3. ADCIRCA [Concomitant]
     Indication: PULMONARY HYPERTENSION
     Route: 048
     Dates: start: 20110915
  4. AVELOX                             /01453202/ [Concomitant]
     Indication: INFECTION PROPHYLAXIS
     Route: 048
     Dates: end: 20120313
  5. FUROSEMIDE [Concomitant]
     Indication: PROPHYLAXIS
     Route: 048
  6. ALDACTONE A [Concomitant]
     Indication: PROPHYLAXIS
     Route: 048
  7. CELESTAMINE                        /01221101/ [Concomitant]
     Indication: INFECTION PROPHYLAXIS
     Route: 048
  8. LIPITOR [Concomitant]
     Route: 048
  9. PARIET [Concomitant]
     Indication: GASTRITIS PROPHYLAXIS
     Route: 048
  10. QVAR [Concomitant]
     Route: 055
  11. HOKUNALIN                          /00654902/ [Concomitant]
     Route: 062
  12. GASMOTIN [Concomitant]
     Indication: GASTRITIS PROPHYLAXIS
     Route: 048
     Dates: start: 20120428

REACTIONS (7)
  - Hypoxia [Recovering/Resolving]
  - Malaise [Recovered/Resolved]
  - Decreased appetite [Recovered/Resolved]
  - Hypercapnia [Recovering/Resolving]
  - Respiratory acidosis [Recovering/Resolving]
  - Lung infiltration [Recovered/Resolved]
  - Pyrexia [Recovered/Resolved]
